FAERS Safety Report 5714858-7 (Version None)
Quarter: 2008Q2

REPORT INFORMATION
  Report Type: 
  Country: None (occurrence: None)
  Receive Date: 20080423
  Receipt Date: 20070518
  Transmission Date: 20081010
  Serious: Yes (Other)
  Sender: FDA-Public Use
  Company Number: US-BAYER-US-2007-018524

PATIENT
  Age: 73 Year
  Sex: Male

DRUGS (1)
  1. LEUKINE [Suspect]
     Indication: LEUKOPENIA
     Dates: start: 20050101, end: 20070511

REACTIONS (4)
  - DIZZINESS [None]
  - HYPERHIDROSIS [None]
  - HYPOTENSION [None]
  - PALLOR [None]
